FAERS Safety Report 9200094 (Version 1)
Quarter: 2013Q1

REPORT INFORMATION
  Report Type: Report from Study
  Country: US (occurrence: US)
  Receive Date: 20130329
  Receipt Date: 20130329
  Transmission Date: 20140127
  Serious: Yes (Other)
  Sender: FDA-Public Use
  Company Number: US-ROCHE-1204439

PATIENT
  Sex: Female
  Weight: 63.11 kg

DRUGS (3)
  1. XELODA [Suspect]
     Indication: BREAST CANCER METASTATIC
     Dosage: 3 TABLETS
     Route: 048
     Dates: start: 201210, end: 201211
  2. XELODA [Suspect]
     Dosage: 3 TABLETS
     Route: 048
     Dates: start: 201211, end: 20121214
  3. XELODA [Suspect]
     Dosage: 2 TABLETS
     Route: 048
     Dates: start: 201211, end: 20121214

REACTIONS (6)
  - Pain in extremity [Recovering/Resolving]
  - Subdural haematoma [Unknown]
  - Hypoaesthesia [Recovering/Resolving]
  - Swelling [Unknown]
  - Feeling cold [Recovering/Resolving]
  - Feeling cold [Recovering/Resolving]
